FAERS Safety Report 22106482 (Version 7)
Quarter: 2023Q4

REPORT INFORMATION
  Report Type: Report from Study
  Country: MX (occurrence: MX)
  Receive Date: 20230317
  Receipt Date: 20231109
  Transmission Date: 20240110
  Serious: Yes (Hospitalization, Other)
  Sender: FDA-Public Use
  Company Number: MX-SA-2023SA056854

PATIENT
  Age: 71 Year
  Sex: Male

DRUGS (22)
  1. ISATUXIMAB [Suspect]
     Active Substance: ISATUXIMAB
     Indication: Plasma cell myeloma refractory
     Dosage: 825 MG, CYC (10 MG/KG)
     Route: 041
     Dates: start: 20221206, end: 20221206
  2. ISATUXIMAB [Suspect]
     Active Substance: ISATUXIMAB
     Dosage: 819 MG, CYC (10 MG/KG)
     Route: 041
     Dates: start: 20221213, end: 20221213
  3. ISATUXIMAB [Suspect]
     Active Substance: ISATUXIMAB
     Dosage: 790 MG, QCY
     Route: 041
     Dates: start: 20221227, end: 20221227
  4. ISATUXIMAB [Suspect]
     Active Substance: ISATUXIMAB
     Dosage: 780 MG, CYC
     Route: 041
     Dates: start: 20230103
  5. BELANTAMAB MAFODOTIN [Suspect]
     Active Substance: BELANTAMAB MAFODOTIN
     Indication: Plasma cell myeloma refractory
     Dosage: 156.75 MG, CYC (1.90 MG/KG)
     Route: 041
     Dates: start: 20221206
  6. PREDNISONE [Concomitant]
     Active Substance: PREDNISONE
     Dosage: UNK
     Dates: start: 20230122, end: 20230126
  7. AMOXICILLIN [Concomitant]
     Active Substance: AMOXICILLIN
     Dosage: UNK
     Dates: start: 20230119, end: 20230126
  8. ACETYLCYSTEINE [Concomitant]
     Active Substance: ACETYLCYSTEINE
     Dosage: UNK
     Dates: start: 20230115, end: 20230122
  9. LEVOTHYROXINE [Concomitant]
     Active Substance: LEVOTHYROXINE
     Dosage: UNK
     Dates: start: 20230112, end: 2023
  10. METOCLOPRAMIDE [Concomitant]
     Active Substance: METOCLOPRAMIDE
     Dosage: UNK
     Dates: start: 20230107, end: 20230122
  11. ACETAMINOPHEN [Concomitant]
     Active Substance: ACETAMINOPHEN
     Dosage: UNK
     Dates: start: 20230107, end: 20230122
  12. KETOPROFEN [Concomitant]
     Active Substance: KETOPROFEN
     Dosage: UNK
     Dates: start: 20230107, end: 20230122
  13. CLAVULANIC ACID [Concomitant]
     Active Substance: CLAVULANIC ACID
     Dosage: UNK
     Dates: start: 20230119, end: 20230126
  14. CLONAZEPAM [Concomitant]
     Active Substance: CLONAZEPAM
     Dosage: UNK
     Dates: start: 20230107, end: 20230110
  15. CEFTAROLINE [Concomitant]
     Active Substance: CEFTAROLINE
     Dosage: UNK
     Dates: start: 20230114, end: 20230122
  16. DIAZEPAM [Concomitant]
     Active Substance: DIAZEPAM
     Dosage: UNK
     Dates: start: 20230109, end: 20230109
  17. PHENYTOIN [Concomitant]
     Active Substance: PHENYTOIN
     Dosage: UNK
     Dates: start: 20230109
  18. LEVOFLOXACIN [Concomitant]
     Active Substance: LEVOFLOXACIN
     Dosage: UNK
     Dates: start: 20230114, end: 20230122
  19. HALOPERIDOL [Concomitant]
     Active Substance: HALOPERIDOL
     Dosage: UNK
     Dates: start: 20230108, end: 20230122
  20. POTASSIUM [Concomitant]
     Active Substance: POTASSIUM
     Dosage: UNK
     Dates: start: 20230112, end: 2023
  21. ATORVASTATIN [Concomitant]
     Active Substance: ATORVASTATIN
     Dosage: UNK
     Dates: start: 20230109, end: 20230122
  22. DEXAMETHASONE [Concomitant]
     Active Substance: DEXAMETHASONE
     Dosage: UNK
     Dates: start: 20230117, end: 20230120

REACTIONS (7)
  - Delirium [Recovered/Resolved]
  - Ischaemic stroke [Recovered/Resolved with Sequelae]
  - Generalised tonic-clonic seizure [Recovered/Resolved with Sequelae]
  - Bacteroides bacteraemia [Recovered/Resolved]
  - Pneumonia [Recovered/Resolved]
  - Subarachnoid abscess [Recovered/Resolved]
  - Device related infection [Recovered/Resolved]

NARRATIVE: CASE EVENT DATE: 20230107
